FAERS Safety Report 13013189 (Version 1)
Quarter: 2016Q4

REPORT INFORMATION
  Report Type: Spontaneous
  Country: US (occurrence: US)
  Receive Date: 20161209
  Receipt Date: 20161209
  Transmission Date: 20170207
  Serious: Yes (Other)
  Sender: FDA-Public Use
  Company Number: US-ELI_LILLY_AND_COMPANY-US201607012947

PATIENT
  Sex: Female
  Weight: 61.2 kg

DRUGS (4)
  1. OMEPRAZOLE. [Concomitant]
     Active Substance: OMEPRAZOLE
     Indication: PRODUCT USED FOR UNKNOWN INDICATION
     Dosage: 20 MG, QD
     Route: 048
  2. CYMBALTA [Suspect]
     Active Substance: DULOXETINE HYDROCHLORIDE
     Indication: FIBROMYALGIA
     Dosage: 30 MG, QD
     Route: 048
     Dates: start: 201207, end: 20121016
  3. METHIMAZOLE. [Concomitant]
     Active Substance: METHIMAZOLE
     Indication: PRODUCT USED FOR UNKNOWN INDICATION
     Dosage: 2 DF, QD
     Route: 048
  4. METOPROLOL. [Concomitant]
     Active Substance: METOPROLOL
     Indication: PRODUCT USED FOR UNKNOWN INDICATION
     Dosage: 100 MG, QD

REACTIONS (19)
  - Affect lability [Unknown]
  - Fatigue [Unknown]
  - Drug withdrawal syndrome [Unknown]
  - Dizziness [Unknown]
  - Agitation [Unknown]
  - Paraesthesia [Unknown]
  - Lethargy [Unknown]
  - Suicidal ideation [Unknown]
  - Dysphoria [Unknown]
  - Confusional state [Unknown]
  - Diarrhoea [Unknown]
  - Insomnia [Unknown]
  - Vertigo [Unknown]
  - Nausea [Unknown]
  - Vomiting [Unknown]
  - Sensory disturbance [Unknown]
  - Hyperhidrosis [Unknown]
  - Headache [Unknown]
  - Irritability [Unknown]
